FAERS Safety Report 5915836-5 (Version None)
Quarter: 2008Q4

REPORT INFORMATION
  Report Type: 
  Country: None (occurrence: None)
  Receive Date: 20081010
  Receipt Date: 20080929
  Transmission Date: 20090506
  Serious: No
  Sender: FDA-Public Use
  Company Number: JP-PFIZER INC-2008080628

PATIENT
  Sex: Female

DRUGS (3)
  1. CELECOX [Suspect]
     Indication: SPINAL COLUMN STENOSIS
     Route: 048
     Dates: start: 20080418, end: 20080419
  2. CINAL [Concomitant]
     Indication: FATIGUE
     Route: 048
     Dates: start: 20070906
  3. KAKKON-TO [Concomitant]
     Indication: FATIGUE
     Route: 048
     Dates: start: 20070906

REACTIONS (1)
  - DISORIENTATION [None]
